FAERS Safety Report 17919173 (Version 3)
Quarter: 2020Q3

REPORT INFORMATION
  Report Type: Spontaneous
  Country: JP (occurrence: JP)
  Receive Date: 20200619
  Receipt Date: 20200819
  Transmission Date: 20201103
  Serious: Yes (Other)
  Sender: FDA-Public Use
  Company Number: JP-BRISTOL-MYERS SQUIBB COMPANY-BMS-2020-048776

PATIENT
  Age: 66 Year
  Sex: Female
  Weight: 50 kg

DRUGS (9)
  1. FOLIAMIN [Concomitant]
     Active Substance: FOLIC ACID
     Indication: RHEUMATOID ARTHRITIS
     Dosage: 5 MILLIGRAM, QWK
     Route: 048
     Dates: start: 20061007, end: 20200605
  2. LOXOPROFEN [Concomitant]
     Active Substance: LOXOPROFEN
     Indication: RHEUMATOID ARTHRITIS
     Dosage: 60 MILLIGRAM, QD
     Route: 048
     Dates: start: 20061007, end: 20191031
  3. ORENCIA [Suspect]
     Active Substance: ABATACEPT
     Indication: RHEUMATOID ARTHRITIS
     Dosage: 125 MILLIGRAM, QWK
     Route: 058
     Dates: start: 20180903, end: 20200605
  4. METHOTREXATE. [Concomitant]
     Active Substance: METHOTREXATE
     Indication: RHEUMATOID ARTHRITIS
     Dosage: 8 MILLIGRAM, QWK
     Route: 048
     Dates: start: 20061007, end: 20200605
  5. EDIROL [Concomitant]
     Active Substance: ELDECALCITOL
     Indication: RHEUMATOID ARTHRITIS
     Dosage: 0.75 MICROGRAM, QD
     Route: 048
     Dates: start: 20140416, end: 20191207
  6. ISCOTIN NEO [Concomitant]
     Active Substance: METHANIAZIDE SODIUM
     Indication: PROPHYLAXIS
     Dosage: 100 MILLIGRAM, TID
     Route: 048
     Dates: start: 20200608, end: 20200707
  7. LOXOPROFEN NA [Concomitant]
     Active Substance: LOXOPROFEN SODIUM
     Indication: PRODUCT USED FOR UNKNOWN INDICATION
     Dosage: 100 MILLIGRAM, BID
     Route: 065
     Dates: start: 20061007, end: 20200605
  8. MENATETRENONE [Concomitant]
     Active Substance: MENATETRENONE
     Indication: RHEUMATOID ARTHRITIS
     Dosage: 15 MILLIGRAM, QD
     Route: 048
     Dates: start: 20140416
  9. REBAMIPIDE [Concomitant]
     Active Substance: REBAMIPIDE
     Indication: RHEUMATOID ARTHRITIS
     Dosage: 1 DOSAGE FORM, QD
     Route: 048
     Dates: start: 20061007, end: 20191031

REACTIONS (1)
  - Latent tuberculosis [Recovering/Resolving]

NARRATIVE: CASE EVENT DATE: 20200605
